FAERS Safety Report 11045378 (Version 3)
Quarter: 2016Q3

REPORT INFORMATION
  Report Type: Spontaneous
  Country: US (occurrence: US)
  Receive Date: 20150417
  Receipt Date: 20160721
  Transmission Date: 20161109
  Serious: Yes (Hospitalization, Other)
  Sender: FDA-Public Use
  Company Number: US-009507513-1504USA017091

PATIENT
  Sex: Male
  Weight: 70.3 kg

DRUGS (11)
  1. PROPECIA [Suspect]
     Active Substance: FINASTERIDE
     Indication: URINE FLOW DECREASED
  2. FINASTERIDE. [Suspect]
     Active Substance: FINASTERIDE
     Indication: PROSTATIC DISORDER
     Dosage: 5 MG, UNKNOWN
     Route: 048
     Dates: start: 20080304, end: 200808
  3. PROSCAR [Suspect]
     Active Substance: FINASTERIDE
     Indication: ALOPECIA
  4. FINASTERIDE. [Suspect]
     Active Substance: FINASTERIDE
     Indication: PROSTATIC DISORDER
  5. INDERAL LA [Suspect]
     Active Substance: PROPRANOLOL HYDROCHLORIDE
     Indication: ESSENTIAL HYPERTENSION
     Dosage: 80 MG, QD
  6. PROPECIA [Suspect]
     Active Substance: FINASTERIDE
     Indication: ALOPECIA
     Dosage: UNK
     Route: 048
     Dates: start: 2000
  7. PROSCAR [Suspect]
     Active Substance: FINASTERIDE
     Indication: PROSTATIC DISORDER
     Dosage: UNK UNK, UNKNOWN
     Route: 048
  8. FINASTERIDE. [Suspect]
     Active Substance: FINASTERIDE
     Indication: ALOPECIA
     Dosage: 5 MG, UNKNOWN
     Route: 048
     Dates: start: 20080812, end: 201001
  9. FINASTERIDE. [Suspect]
     Active Substance: FINASTERIDE
     Indication: BENIGN PROSTATIC HYPERPLASIA
  10. FINASTERIDE. [Suspect]
     Active Substance: FINASTERIDE
     Indication: BENIGN PROSTATIC HYPERPLASIA
     Dosage: 5 MG, UNK
     Route: 048
     Dates: start: 20090528, end: 201009
  11. PROZAC [Concomitant]
     Active Substance: FLUOXETINE HYDROCHLORIDE
     Indication: DEPRESSION
     Dosage: UNK
     Route: 065
     Dates: start: 1987

REACTIONS (18)
  - Essential hypertension [Unknown]
  - Anxiety [Not Recovered/Not Resolved]
  - Depression [Not Recovered/Not Resolved]
  - Emotional distress [Not Recovered/Not Resolved]
  - Treatment noncompliance [Unknown]
  - Cholelithiasis [Unknown]
  - Sexual dysfunction [Not Recovered/Not Resolved]
  - Osteoarthritis [Unknown]
  - Hepatic steatosis [Unknown]
  - Drug ineffective [Unknown]
  - Suicidal ideation [Unknown]
  - Erectile dysfunction [Not Recovered/Not Resolved]
  - Gastrooesophageal reflux disease [Unknown]
  - Hyperlipidaemia [Unknown]
  - Diverticulitis [Unknown]
  - Drug administration error [Unknown]
  - Migraine [Unknown]
  - Off label use [Unknown]

NARRATIVE: CASE EVENT DATE: 2003
